FAERS Safety Report 8418131-8 (Version None)
Quarter: 2012Q2

REPORT INFORMATION
  Report Type: 
  Country: None (occurrence: None)
  Receive Date: 20120604
  Receipt Date: 20120604
  Transmission Date: 20120825
  Serious: Yes (Other)
  Sender: FDA-Public Use
  Company Number: None

PATIENT
  Age: 53 Year
  Sex: Female
  Weight: 102.0593 kg

DRUGS (2)
  1. CYMBALTA [Suspect]
     Indication: MAJOR DEPRESSION
     Dosage: 30 1 PER DAY PO
     Route: 048
     Dates: start: 20120509, end: 20120516
  2. CYMBALTA [Suspect]
     Indication: MAJOR DEPRESSION
     Dosage: 60 1 PER DAY PO
     Route: 048
     Dates: start: 20120314, end: 20120508

REACTIONS (14)
  - HYPERHIDROSIS [None]
  - FATIGUE [None]
  - NAUSEA [None]
  - FEELING ABNORMAL [None]
  - VISION BLURRED [None]
  - ANGER [None]
  - VOMITING [None]
  - VISUAL FIELD DEFECT [None]
  - WITHDRAWAL SYNDROME [None]
  - ANXIETY [None]
  - PARAESTHESIA [None]
  - MALAISE [None]
  - DIZZINESS [None]
  - VISUAL IMPAIRMENT [None]
